FAERS Safety Report 12014040 (Version 4)
Quarter: 2016Q1

REPORT INFORMATION
  Report Type: Spontaneous
  Country: BR (occurrence: BR)
  Receive Date: 20160205
  Receipt Date: 20160217
  Transmission Date: 20160526
  Serious: No
  Sender: FDA-Public Use
  Company Number: BR-SA-2016SA019462

PATIENT
  Age: 63 Year
  Sex: Male
  Weight: 82.7 kg

DRUGS (7)
  1. TRADJENTA [Concomitant]
     Active Substance: LINAGLIPTIN
     Indication: DIABETES MELLITUS
     Route: 048
     Dates: start: 2014
  2. APIDRA SOLOSTAR [Suspect]
     Active Substance: INSULIN GLULISINE
     Indication: DIABETES MELLITUS
     Dosage: AFTER EATING
     Route: 065
     Dates: start: 20160111
  3. SOLOSTAR [Suspect]
     Active Substance: DEVICE
     Indication: DIABETES MELLITUS
     Dates: start: 20160111
  4. LANTUS SOLOSTAR [Suspect]
     Active Substance: INSULIN GLARGINE
     Indication: DIABETES MELLITUS
     Dosage: AT NIGHT
     Route: 065
     Dates: start: 20160111
  5. NOVOMIX [Concomitant]
     Active Substance: INSULIN ASPART
  6. SOLOSTAR [Concomitant]
     Active Substance: DEVICE
     Indication: DIABETES MELLITUS
     Dates: start: 20160111
  7. NOVORAPID [Concomitant]
     Active Substance: INSULIN ASPART

REACTIONS (4)
  - Blister [Recovering/Resolving]
  - Application site mass [Recovering/Resolving]
  - Expired product administered [Unknown]
  - Injection site pruritus [Recovering/Resolving]

NARRATIVE: CASE EVENT DATE: 201601
